FAERS Safety Report 22589137 (Version 1)
Quarter: 2023Q2

REPORT INFORMATION
  Report Type: Spontaneous
  Country: US (occurrence: None)
  Receive Date: 20230609
  Receipt Date: 20230609
  Transmission Date: 20230722
  Serious: Yes (Hospitalization)
  Sender: FDA-Public Use
  Company Number: None

PATIENT
  Age: 74 Year
  Sex: Female
  Weight: 48.6 kg

DRUGS (23)
  1. TYRVAYA [Suspect]
     Active Substance: VARENICLINE TARTRATE
     Indication: Dry eye
     Dosage: OTHER QUANTITY : 1 SPRAY(S);?FREQUENCY : TWICE A DAY;?
     Route: 055
     Dates: start: 20230603, end: 20230604
  2. PREDNISONE [Concomitant]
  3. VALTREX [Concomitant]
     Active Substance: VALACYCLOVIR HYDROCHLORIDE
  4. TRADOZONE [Concomitant]
  5. IPRATROPIUM [Concomitant]
  6. VALSARTAN [Concomitant]
  7. ZOLPIDEM  CR [Concomitant]
  8. RESTASIS [Concomitant]
     Active Substance: CYCLOSPORINE
  9. NEOMYCIN/POLYMXIN/DEXAMETHASONE [Concomitant]
  10. PROPANOL [Concomitant]
  11. ALENDRAONATE [Concomitant]
  12. ROSUVASTATIN [Concomitant]
  13. DOXYCYCLINE [Concomitant]
     Active Substance: DOXYCYCLINE
  14. NYSTATIN [Concomitant]
  15. FINASTERIDE [Concomitant]
     Active Substance: FINASTERIDE
  16. PREVIDENT [Concomitant]
  17. XYZAL [Concomitant]
     Active Substance: LEVOCETIRIZINE DIHYDROCHLORIDE
  18. COENZYME Q10 [Concomitant]
     Active Substance: DIETARY SUPPLEMENT\UBIDECARENONE
  19. CALCIUM\CHOLECALCIFEROL [Concomitant]
     Active Substance: CALCIUM\CHOLECALCIFEROL
  20. KRILL OIL [Concomitant]
  21. ESTER C [Concomitant]
  22. POTASSIUM [Concomitant]
     Active Substance: POTASSIUM
  23. PROBIOTIC ALIGN [Concomitant]

REACTIONS (6)
  - Hypoaesthesia oral [None]
  - Eyelid ptosis [None]
  - Lip disorder [None]
  - Bell^s palsy [None]
  - Vision blurred [None]
  - Sneezing [None]

NARRATIVE: CASE EVENT DATE: 20230604
